FAERS Safety Report 18947010 (Version 1)
Quarter: 2021Q1

REPORT INFORMATION
  Report Type: Spontaneous
  Country: TR (occurrence: TR)
  Receive Date: 20210226
  Receipt Date: 20210226
  Transmission Date: 20210420
  Serious: Yes (Other)
  Sender: FDA-Public Use
  Company Number: NVSC2021TR034563

PATIENT
  Age: 29 Year
  Sex: Female

DRUGS (1)
  1. ILARIS [Suspect]
     Active Substance: CANAKINUMAB
     Indication: FAMILIAL MEDITERRANEAN FEVER
     Dosage: UNK
     Route: 065

REACTIONS (7)
  - Product supply issue [Unknown]
  - Road traffic accident [Unknown]
  - Pain [Not Recovered/Not Resolved]
  - Off label use [Not Recovered/Not Resolved]
  - Knee deformity [Unknown]
  - Familial mediterranean fever [Recovered/Resolved]
  - Condition aggravated [Unknown]
